FAERS Safety Report 8071017-3 (Version None)
Quarter: 2012Q1

REPORT INFORMATION
  Report Type: 
  Country: None (occurrence: None)
  Receive Date: 20120125
  Receipt Date: 20120120
  Transmission Date: 20120608
  Serious: No
  Sender: FDA-Public Use
  Company Number: US-BAYER-2012-007851

PATIENT
  Age: 58 Year
  Sex: Female
  Weight: 136 kg

DRUGS (5)
  1. ATENOLOL [Concomitant]
  2. ALEVE (CAPLET) [Suspect]
     Dosage: 2 TAB ONCE DAILY
     Route: 048
     Dates: start: 20120117, end: 20120118
  3. ACETYLSALICYLIC ACID SRT [Concomitant]
  4. HYDROCHROIDE [Concomitant]
  5. LIPITOR [Concomitant]

REACTIONS (1)
  - PAIN [None]
